FAERS Safety Report 18999182 (Version 1)
Quarter: 2021Q1

REPORT INFORMATION
  Report Type: Spontaneous
  Country: US (occurrence: US)
  Receive Date: 20210311
  Receipt Date: 20210311
  Transmission Date: 20210420
  Serious: No
  Sender: FDA-Public Use
  Company Number: US-TAKEDA-2021TUS014576

PATIENT
  Sex: Female
  Weight: 70 kg

DRUGS (19)
  1. LIDOCAINE/PRILOCAINE [Concomitant]
     Active Substance: LIDOCAINE\PRILOCAINE
     Route: 065
  2. SODIUM CHLORIDE. [Concomitant]
     Active Substance: SODIUM CHLORIDE
     Route: 065
  3. OXYGEN. [Concomitant]
     Active Substance: OXYGEN
     Route: 065
  4. ALBUTEROL;IPRATROPIUM [Concomitant]
     Active Substance: ALBUTEROL\IPRATROPIUM
     Route: 065
  5. ARALAST [Suspect]
     Active Substance: .ALPHA.1-PROTEINASE INHIBITOR HUMAN
     Indication: ALPHA-1 ANTITRYPSIN DEFICIENCY
  6. PREDNISONE. [Concomitant]
     Active Substance: PREDNISONE
     Route: 065
  7. ARALAST [Suspect]
     Active Substance: .ALPHA.1-PROTEINASE INHIBITOR HUMAN
     Indication: ALPHA-1 ANTITRYPSIN DEFICIENCY
  8. ARALAST [Suspect]
     Active Substance: .ALPHA.1-PROTEINASE INHIBITOR HUMAN
     Indication: CHRONIC OBSTRUCTIVE PULMONARY DISEASE
     Dosage: 4500 MILLIGRAM, 1/WEEK
     Route: 042
     Dates: start: 20140310
  9. DIPHENHYDRAMINE. [Concomitant]
     Active Substance: DIPHENHYDRAMINE
     Route: 065
  10. LORAZEPAM. [Concomitant]
     Active Substance: LORAZEPAM
     Route: 065
  11. PROAIR HFA [Concomitant]
     Active Substance: ALBUTEROL SULFATE
     Route: 065
  12. EPINEPHRINE. [Concomitant]
     Active Substance: EPINEPHRINE
     Route: 065
  13. TYLENOL 8HR [Concomitant]
     Active Substance: ACETAMINOPHEN
     Route: 065
  14. METFORMIN [Concomitant]
     Active Substance: METFORMIN HYDROCHLORIDE
     Route: 065
  15. ZAFIRLUKAST. [Concomitant]
     Active Substance: ZAFIRLUKAST
     Route: 065
  16. ARALAST [Suspect]
     Active Substance: .ALPHA.1-PROTEINASE INHIBITOR HUMAN
     Indication: CHRONIC OBSTRUCTIVE PULMONARY DISEASE
     Dosage: 4500 MILLIGRAM, 1/WEEK
     Route: 042
     Dates: start: 20140310
  17. VITAMIN D2 [Concomitant]
     Active Substance: ERGOCALCIFEROL
     Route: 065
  18. BUDESONIDE. [Concomitant]
     Active Substance: BUDESONIDE
     Route: 065
  19. STIOLTO RESPIMAT [Concomitant]
     Active Substance: OLODATEROL HYDROCHLORIDE\TIOTROPIUM BROMIDE MONOHYDRATE
     Route: 065

REACTIONS (1)
  - Nasopharyngitis [Unknown]
